FAERS Safety Report 6335712-6 (Version None)
Quarter: 2009Q3

REPORT INFORMATION
  Report Type: 
  Country: None (occurrence: None)
  Receive Date: 20090831
  Receipt Date: 20090814
  Transmission Date: 20100115
  Serious: Yes (Death, Hospitalization, Other)
  Sender: FDA-Public Use
  Company Number: US-BAXTER-2009BH012742

PATIENT
  Age: 60 Year
  Sex: Female

DRUGS (1)
  1. DIANEAL [Suspect]
     Indication: PERITONEAL DIALYSIS
     Route: 033
     Dates: end: 20090724

REACTIONS (4)
  - DEEP VEIN THROMBOSIS [None]
  - FUNGAL PERITONITIS [None]
  - INTESTINAL PERFORATION [None]
  - RESPIRATORY ARREST [None]
